FAERS Safety Report 15241369 (Version 1)
Quarter: 2018Q3

REPORT INFORMATION
  Report Type: Spontaneous
  Country: DK (occurrence: DK)
  Receive Date: 20180805
  Receipt Date: 20180805
  Transmission Date: 20181010
  Serious: Yes (Hospitalization)
  Sender: FDA-Public Use
  Company Number: DK-CONCORDIA PHARMACEUTICALS INC.-E2B_00015304

PATIENT
  Age: 85 Year
  Sex: Female

DRUGS (1)
  1. DIGOXIN. [Suspect]
     Active Substance: DIGOXIN
     Indication: HEART RATE IRREGULAR
     Dosage: STYRKE: 62,5 MG.
     Route: 048
     Dates: start: 20140910, end: 20170706

REACTIONS (3)
  - Cardiac pacemaker insertion [Recovered/Resolved]
  - Toxicity to various agents [Recovered/Resolved]
  - Dyspnoea [Recovered/Resolved]

NARRATIVE: CASE EVENT DATE: 2017
